FAERS Safety Report 24248286 (Version 5)
Quarter: 2024Q4

REPORT INFORMATION
  Report Type: Report from Study
  Country: DE (occurrence: DE)
  Receive Date: 20240826
  Receipt Date: 20241221
  Transmission Date: 20250115
  Serious: Yes (Life-Threatening, Other)
  Sender: ROCHE
  Company Number: DE-ML39632-2270871-0

PATIENT
  Age: 55 Year
  Sex: Female
  Weight: 48 kg

DRUGS (19)
  1. OCREVUS [Suspect]
     Active Substance: OCRELIZUMAB
     Indication: Relapsing multiple sclerosis
     Route: 042
     Dates: start: 20181107, end: 20181126
  2. OCREVUS [Suspect]
     Active Substance: OCRELIZUMAB
     Route: 042
     Dates: start: 20190522, end: 20240603
  3. RANITIDINE HYDROCHLORIDE [Concomitant]
     Active Substance: RANITIDINE HYDROCHLORIDE
     Route: 048
     Dates: start: 20181106, end: 20181108
  4. RANITIDINE HYDROCHLORIDE [Concomitant]
     Active Substance: RANITIDINE HYDROCHLORIDE
     Route: 048
     Dates: start: 20181125, end: 20181127
  5. FURADANTIN [Concomitant]
     Active Substance: NITROFURANTOIN
     Indication: Infection prophylaxis
     Route: 048
     Dates: start: 20220302
  6. CHOLECALCIFEROL [Concomitant]
     Active Substance: CHOLECALCIFEROL
     Indication: Vitamin supplementation
     Route: 048
     Dates: start: 20130409
  7. Spasmex [Concomitant]
     Indication: Hypertonic bladder
     Route: 048
     Dates: start: 202007
  8. LEVOTHYROXINE SODIUM [Concomitant]
     Active Substance: LEVOTHYROXINE SODIUM
     Indication: Hypothyroidism
     Dosage: 50 UG.
     Route: 048
     Dates: start: 202005
  9. Acimol [Concomitant]
     Indication: Infection prophylaxis
     Dates: start: 201911, end: 202002
  10. DALFAMPRIDINE [Concomitant]
     Active Substance: DALFAMPRIDINE
     Route: 048
     Dates: start: 20120305
  11. PREDNISOLONE [Concomitant]
     Active Substance: PREDNISOLONE
     Route: 042
     Dates: start: 20181107, end: 20181107
  12. PREDNISOLONE [Concomitant]
     Active Substance: PREDNISOLONE
     Route: 042
     Dates: start: 20181126, end: 20181126
  13. EBASTINE [Concomitant]
     Active Substance: EBASTINE
     Route: 048
     Dates: start: 20181106, end: 20181108
  14. EBASTINE [Concomitant]
     Active Substance: EBASTINE
     Route: 048
     Dates: start: 20181125, end: 20181127
  15. NABIXIMOLS [Concomitant]
     Active Substance: NABIXIMOLS
     Indication: Muscle spasticity
     Route: 048
     Dates: start: 20130828
  16. TIZANIDINE [Concomitant]
     Active Substance: TIZANIDINE
     Indication: Muscle spasticity
     Route: 048
     Dates: start: 201412
  17. VESIKUR [Concomitant]
     Active Substance: SOLIFENACIN SUCCINATE
     Indication: Bladder dysfunction
     Route: 048
     Dates: start: 202004, end: 202007
  18. BACLOFEN [Concomitant]
     Active Substance: BACLOFEN
     Indication: Muscle spasticity
     Route: 048
     Dates: start: 201208
  19. Nitroxilin [Concomitant]
     Indication: Prophylaxis urinary tract infection
     Route: 048
     Dates: start: 201911

REACTIONS (2)
  - Brain neoplasm [Recovered/Resolved]
  - Deafness [Not Recovered/Not Resolved]

NARRATIVE: CASE EVENT DATE: 20240819
